FAERS Safety Report 19501942 (Version 2)
Quarter: 2021Q3

REPORT INFORMATION
  Report Type: Other
  Country: JP (occurrence: JP)
  Receive Date: 20210707
  Receipt Date: 20210712
  Transmission Date: 20211014
  Serious: Yes (Death, Hospitalization, Other)
  Sender: FDA-Public Use
  Company Number: JP-ROCHE-2863259

PATIENT
  Age: 26 Year
  Sex: Female

DRUGS (3)
  1. CARBOPLATIN. [Concomitant]
     Active Substance: CARBOPLATIN
     Indication: VAGINAL CANCER
  2. PACLITAXEL. [Concomitant]
     Active Substance: PACLITAXEL
     Indication: VAGINAL CANCER
  3. AVASTIN [Suspect]
     Active Substance: BEVACIZUMAB
     Indication: VAGINAL CANCER
     Route: 041

REACTIONS (5)
  - Disseminated intravascular coagulation [Unknown]
  - Disease progression [Fatal]
  - Off label use [Unknown]
  - Endocarditis noninfective [Recovering/Resolving]
  - Thrombophlebitis migrans [Recovering/Resolving]
